FAERS Safety Report 23347089 (Version 1)
Quarter: 2023Q4

REPORT INFORMATION
  Report Type: Spontaneous
  Country: SA (occurrence: SA)
  Receive Date: 20231228
  Receipt Date: 20231228
  Transmission Date: 20240110
  Serious: Yes (Death, Hospitalization, Other)
  Sender: FDA-Public Use
  Company Number: SA-AMGEN-SAUSP2023230723

PATIENT

DRUGS (1)
  1. DARBEPOETIN ALFA [Suspect]
     Active Substance: DARBEPOETIN ALFA
     Indication: Product used for unknown indication
     Dosage: UNK (WEEKLY DOSE OF DARBEPOETIN ALFA WAS 40 MCG)
     Route: 058

REACTIONS (5)
  - Death [Fatal]
  - Nosocomial infection [Unknown]
  - Liver injury [Unknown]
  - Atrial fibrillation [Unknown]
  - Thrombosis [Unknown]
